FAERS Safety Report 20026572 (Version 1)
Quarter: 2021Q4

REPORT INFORMATION
  Report Type: Spontaneous
  Country: CA (occurrence: CA)
  Receive Date: 20211102
  Receipt Date: 20211102
  Transmission Date: 20220303
  Serious: Yes (Hospitalization)
  Sender: FDA-Public Use
  Company Number: CA-TEVA-2021-CA-1970915

PATIENT
  Age: 72 Year
  Sex: Female
  Weight: 60 kg

DRUGS (12)
  1. DOXORUBICIN HYDROCHLORIDE [Suspect]
     Active Substance: DOXORUBICIN HYDROCHLORIDE
     Indication: Non-Hodgkin^s lymphoma
     Route: 042
  2. CYCLOPHOSPHAMIDE [Suspect]
     Active Substance: CYCLOPHOSPHAMIDE
     Indication: Non-Hodgkin^s lymphoma
     Route: 042
  3. HYDROXYUREA [Suspect]
     Active Substance: HYDROXYUREA
     Indication: Non-Hodgkin^s lymphoma
     Dosage: 1000 MILLIGRAM DAILY;
     Route: 048
  4. RITUXAN [Suspect]
     Active Substance: RITUXIMAB
     Indication: Non-Hodgkin^s lymphoma
     Route: 042
  5. METFORMIN/SITAGLIPTINE [Concomitant]
  6. ALLOPURINOL [Concomitant]
     Active Substance: ALLOPURINOL
  7. CRESTOR [Concomitant]
     Active Substance: ROSUVASTATIN CALCIUM
  8. OZEMPIC MULTIDOSEPREFILLED PEN DISPENSES 1MG DOSE [Concomitant]
  9. PERINDOPRIL [Concomitant]
     Active Substance: PERINDOPRIL
  10. PREDNISONE [Concomitant]
     Active Substance: PREDNISONE
  11. PROCHLORPERAZINE [Concomitant]
     Active Substance: PROCHLORPERAZINE
  12. ZOFRAN [Concomitant]
     Active Substance: ONDANSETRON HYDROCHLORIDE

REACTIONS (5)
  - Diarrhoea [Recovered/Resolved]
  - Pleuritic pain [Recovered/Resolved]
  - Pseudomonas infection [Recovered/Resolved]
  - Rales [Recovered/Resolved]
  - White blood cell count decreased [Recovered/Resolved]
